FAERS Safety Report 5320864-7 (Version None)
Quarter: 2007Q2

REPORT INFORMATION
  Report Type: 
  Country: None (occurrence: None)
  Receive Date: 20070504
  Receipt Date: 20070418
  Transmission Date: 20071010
  Serious: Yes (Hospitalization)
  Sender: FDA-Public Use
  Company Number: DSA_29835_2007

PATIENT
  Sex: Male

DRUGS (4)
  1. DILZEM / 00489701/ (DILZEM) [Suspect]
     Indication: HYPERTENSION
     Dosage: (120 MG QD, ORAL)
     Route: 048
     Dates: end: 20070212
  2. NITRODERM [Suspect]
     Dosage: TRANSDERMAL
     Route: 062
     Dates: end: 20070212
  3. ATORVASTATIN CALCIUM [Concomitant]
  4. ASPIRIN [Concomitant]

REACTIONS (12)
  - AORTIC DILATATION [None]
  - BRADYCARDIA [None]
  - CHEST PAIN [None]
  - DIASTOLIC DYSFUNCTION [None]
  - HYPOTENSION [None]
  - MALAISE [None]
  - NAUSEA [None]
  - QRS AXIS ABNORMAL [None]
  - SUPRAVENTRICULAR EXTRASYSTOLES [None]
  - SYNCOPE [None]
  - VENTRICULAR EXTRASYSTOLES [None]
  - VERTIGO [None]
